FAERS Safety Report 6502584-6 (Version None)
Quarter: 2009Q4

REPORT INFORMATION
  Report Type: 
  Country: None (occurrence: None)
  Receive Date: 20091217
  Receipt Date: 20091207
  Transmission Date: 20100525
  Serious: Yes (Other)
  Sender: FDA-Public Use
  Company Number: GR-JNJFOC-20091201628

PATIENT
  Age: 30 Year

DRUGS (3)
  1. INFLIXIMAB [Suspect]
     Dosage: FOR 2.5 YEARS
     Route: 042
  2. INFLIXIMAB [Suspect]
     Indication: CROHN'S DISEASE
     Dosage: FOR 1.5 YEARS
     Route: 042
  3. AZATHIOPRINE [Suspect]
     Indication: CROHN'S DISEASE

REACTIONS (1)
  - HODGKIN'S DISEASE STAGE III [None]
